FAERS Safety Report 12738533 (Version 4)
Quarter: 2017Q1

REPORT INFORMATION
  Report Type: Spontaneous
  Country: US (occurrence: US)
  Receive Date: 20160913
  Receipt Date: 20170113
  Transmission Date: 20170428
  Serious: No
  Sender: FDA-Public Use
  Company Number: US-PFIZER INC-2016427146

PATIENT
  Age: 14 Year
  Sex: Male
  Weight: 84 kg

DRUGS (7)
  1. NEXIUM [Concomitant]
     Active Substance: ESOMEPRAZOLE MAGNESIUM
     Dosage: 20 MG, UNK
     Dates: start: 2012
  2. ONFI [Concomitant]
     Active Substance: CLOBAZAM
     Dosage: 20 MG, UNK
     Dates: start: 2014
  3. SERTEX [Concomitant]
     Dosage: UNK
     Dates: start: 2012
  4. GENOTROPIN MQ [Suspect]
     Active Substance: SOMATROPIN
     Indication: GROWTH HORMONE DEFICIENCY
     Dosage: 0.6 MG INJECTED ON THE BELLY, 1X/DAY
     Dates: start: 20160901
  5. ZONISAMIDE. [Concomitant]
     Active Substance: ZONISAMIDE
     Dosage: 100 MG, UNK
     Dates: start: 2010
  6. MONTELUKAST [Concomitant]
     Active Substance: MONTELUKAST SODIUM
     Dosage: 5 MG, UNK
     Dates: start: 2012
  7. LEVOTHYROXINE. [Concomitant]
     Active Substance: LEVOTHYROXINE
     Indication: THYROID DISORDER
     Dosage: 88 UG, UNK
     Dates: start: 2010

REACTIONS (3)
  - Product quality issue [Unknown]
  - Injection site haemorrhage [Recovered/Resolved]
  - Poor quality drug administered [Unknown]

NARRATIVE: CASE EVENT DATE: 20160901
